FAERS Safety Report 6870139-X (Version None)
Quarter: 2010Q3

REPORT INFORMATION
  Report Type: 
  Country: None (occurrence: None)
  Receive Date: 20100721
  Receipt Date: 20100716
  Transmission Date: 20110219
  Serious: Yes (Other)
  Sender: FDA-Public Use
  Company Number: 015588

PATIENT
  Sex: Female
  Weight: 79 kg

DRUGS (8)
  1. CERTOLIZUMAB PEGOL (CERTOLIZUMAB PEGOL) [Suspect]
     Indication: RHEUMATOID ARTHRITIS
     Dosage: (400 MG 1X/2 WEEKS SUBCUTANEOUS), 9200 MG 1X/2 WEEKS SUBCUTANEOUS)
     Route: 058
     Dates: start: 20091006, end: 20091103
  2. CERTOLIZUMAB PEGOL (CERTOLIZUMAB PEGOL) [Suspect]
     Indication: RHEUMATOID ARTHRITIS
     Dosage: (400 MG 1X/2 WEEKS SUBCUTANEOUS), 9200 MG 1X/2 WEEKS SUBCUTANEOUS)
     Route: 058
     Dates: start: 20091117, end: 20100715
  3. TAUXIB [Concomitant]
  4. ARCOXIA [Concomitant]
  5. LOSEC /00661201/ [Concomitant]
  6. SERETIDE /01420901/ [Concomitant]
  7. ACETAMINOPHEN [Concomitant]
  8. PRITOR [Concomitant]

REACTIONS (4)
  - FUNGAL SKIN INFECTION [None]
  - HEADACHE [None]
  - HYPERTENSION [None]
  - RASH [None]
